FAERS Safety Report 19993766 (Version 1)
Quarter: 2021Q4

REPORT INFORMATION
  Report Type: Spontaneous
  Country: US (occurrence: US)
  Receive Date: 20211025
  Receipt Date: 20211025
  Transmission Date: 20220303
  Serious: Yes (Other)
  Sender: FDA-Public Use
  Company Number: US-PFIZER INC-202101399910

PATIENT
  Sex: Female

DRUGS (1)
  1. GABAPENTIN [Suspect]
     Active Substance: GABAPENTIN
     Dosage: UNK

REACTIONS (5)
  - Neuropathy peripheral [Unknown]
  - Pneumonia [Unknown]
  - Pain in extremity [Unknown]
  - COVID-19 [Unknown]
  - Drug ineffective [Unknown]
